FAERS Safety Report 7435297-7 (Version None)
Quarter: 2011Q2

REPORT INFORMATION
  Report Type: 
  Country: None (occurrence: None)
  Receive Date: 20110425
  Receipt Date: 20110418
  Transmission Date: 20111010
  Serious: Yes (Life-Threatening)
  Sender: FDA-Public Use
  Company Number: US-ROXANE LABORATORIES, INC.-2011-RO-00525RO

PATIENT
  Age: 62 Year
  Sex: Male

DRUGS (2)
  1. PREDNISONE [Suspect]
     Indication: MYASTHENIA GRAVIS
  2. AZATHIOPRINE [Suspect]
     Indication: MYASTHENIA GRAVIS

REACTIONS (1)
  - MALIGNANT MELANOMA STAGE IV [None]
